FAERS Safety Report 19654763 (Version 3)
Quarter: 2023Q2

REPORT INFORMATION
  Report Type: Other
  Country: US (occurrence: US)
  Receive Date: 20210804
  Receipt Date: 20230502
  Transmission Date: 20230721
  Serious: Yes (Other)
  Sender: FDA-Public Use
  Company Number: US-INTERCEPT-PM2021002350

PATIENT
  Sex: Female
  Weight: 78.005 kg

DRUGS (16)
  1. OCALIVA [Suspect]
     Active Substance: OBETICHOLIC ACID
     Indication: Primary biliary cholangitis
     Dosage: 5 MILLIGRAM, QD
     Route: 048
     Dates: start: 20180420
  2. OCALIVA [Suspect]
     Active Substance: OBETICHOLIC ACID
     Dosage: 10 MILLIGRAM, QD
     Route: 048
     Dates: start: 20190515
  3. ALEVE [Suspect]
     Active Substance: NAPROXEN SODIUM
     Indication: Pain
     Dosage: UNK
     Route: 065
  4. ACTIGALL [Concomitant]
     Active Substance: URSODIOL
     Dosage: 250 MILLIGRAM
  5. ACTIGALL [Concomitant]
     Active Substance: URSODIOL
     Dosage: 600 MILLIGRAM, TID
     Route: 048
  6. VITAMIN D3 [Concomitant]
     Active Substance: CHOLECALCIFEROL
     Dosage: 25 MICROGRAM
  7. TRICOR [Concomitant]
     Active Substance: FENOFIBRATE
     Dosage: 145 MILLIGRAM, QD
     Route: 048
  8. HYDROXYCHLOROQUINE DIPHOSPHATE [Concomitant]
     Active Substance: HYDROXYCHLOROQUINE DIPHOSPHATE
     Dosage: 200 MILLIGRAM, QD
     Route: 048
  9. HYDROXYCHLOROQUINE SULFATE [Concomitant]
     Active Substance: HYDROXYCHLOROQUINE SULFATE
  10. DRISDOL [Concomitant]
     Active Substance: ERGOCALCIFEROL
     Dosage: 1 DOSAGE FORM, EVERY 2 WEEKS
     Route: 048
  11. GOLYTELY [Concomitant]
     Active Substance: POLYETHYLENE GLYCOL 3350\POTASSIUM CHLORIDE\SODIUM BICARBONATE\SODIUM CHLORIDE\SODIUM SULFATE
     Dosage: 4000 MILLILITER, SINGLE
     Route: 048
     Dates: start: 20210428, end: 20210428
  12. IRON [Concomitant]
     Active Substance: IRON
  13. SYNTHROID [Concomitant]
     Active Substance: LEVOTHYROXINE SODIUM
  14. SIMVASTATIN [Concomitant]
     Active Substance: SIMVASTATIN
  15. CARVEDILOL [Concomitant]
     Active Substance: CARVEDILOL
  16. PRILOSEC [Concomitant]
     Active Substance: OMEPRAZOLE MAGNESIUM

REACTIONS (11)
  - Portal hypertensive gastropathy [Unknown]
  - Haematochezia [Unknown]
  - COVID-19 [Unknown]
  - Hepatic cirrhosis [Unknown]
  - Nodule [Unknown]
  - Cholecystectomy [Unknown]
  - Varices oesophageal [Unknown]
  - Iron deficiency anaemia [Not Recovered/Not Resolved]
  - Pain [Unknown]
  - Weight decreased [Unknown]
  - Fatigue [Unknown]

NARRATIVE: CASE EVENT DATE: 20180101
